FAERS Safety Report 10231643 (Version 2)
Quarter: 2014Q2

REPORT INFORMATION
  Report Type: Report from Study
  Country: US (occurrence: US)
  Receive Date: 20140611
  Receipt Date: 20140620
  Transmission Date: 20141212
  Serious: Yes (Other)
  Sender: FDA-Public Use
  Company Number: PHEH2014US011676

PATIENT
  Age: 37 Year
  Sex: Female

DRUGS (6)
  1. GILENYA [Suspect]
     Indication: MULTIPLE SCLEROSIS
     Dosage: 0.5 MG, QD
     Route: 048
  2. MARIJUANA [Concomitant]
  3. BACLOFEN [Concomitant]
     Dosage: 10 MG, UNK
     Route: 048
  4. CLONAZEPAM [Concomitant]
     Dosage: 0.5 MG, UNK
     Route: 048
  5. VITAMIN B12 [Concomitant]
     Route: 048
  6. GLUTATHIONE [Concomitant]
     Dosage: 500 MG, UNK
     Route: 048

REACTIONS (8)
  - Tongue biting [Recovering/Resolving]
  - Mouth injury [Recovering/Resolving]
  - Mouth haemorrhage [Recovering/Resolving]
  - Oral pain [Recovering/Resolving]
  - Multiple sclerosis relapse [Recovering/Resolving]
  - Weight increased [Unknown]
  - Insomnia [Unknown]
  - Weight decreased [Recovering/Resolving]
